FAERS Safety Report 7593142-3 (Version None)
Quarter: 2011Q3

REPORT INFORMATION
  Report Type: 
  Country: None (occurrence: None)
  Receive Date: 20110706
  Receipt Date: 20110704
  Transmission Date: 20111222
  Serious: Yes (Other)
  Sender: FDA-Public Use
  Company Number: KR-PFIZER INC-2011149078

PATIENT
  Sex: Female

DRUGS (3)
  1. EFFEXOR XR [Suspect]
     Dosage: 75 MG, 1X/DAY
     Route: 048
     Dates: start: 20110601
  2. EFFEXOR XR [Suspect]
     Dosage: 75 MG, 2X/DAY
     Route: 048
     Dates: start: 20110620, end: 20110601
  3. EFFEXOR XR [Suspect]
     Indication: DEPRESSION
     Dosage: 37.5 MG, 2X/DAY
     Route: 048
     Dates: start: 20110617, end: 20110619

REACTIONS (7)
  - DYSPHAGIA [None]
  - NIGHTMARE [None]
  - TONGUE PARALYSIS [None]
  - MUSCLE TIGHTNESS [None]
  - DAYDREAMING [None]
  - THIRST [None]
  - INSOMNIA [None]
